FAERS Safety Report 12331034 (Version 1)
Quarter: 2016Q2

REPORT INFORMATION
  Report Type: Spontaneous
  Country: NL (occurrence: NL)
  Receive Date: 20160504
  Receipt Date: 20160504
  Transmission Date: 20160815
  Serious: Yes (Hospitalization)
  Sender: FDA-Public Use
  Company Number: NL-ROCHE-1751960

PATIENT
  Sex: Female

DRUGS (2)
  1. XOLAIR [Suspect]
     Active Substance: OMALIZUMAB
     Indication: ASTHMA
     Route: 065
     Dates: start: 20160223
  2. XOLAIR [Suspect]
     Active Substance: OMALIZUMAB
     Route: 065
     Dates: start: 20160322

REACTIONS (6)
  - Pneumonia [Unknown]
  - Bronchopulmonary aspergillosis [Unknown]
  - Muscle spasms [Unknown]
  - Gastric dilatation [Unknown]
  - Diarrhoea [Unknown]
  - Constipation [Unknown]
